FAERS Safety Report 17463131 (Version 1)
Quarter: 2020Q1

REPORT INFORMATION
  Report Type: Spontaneous
  Country: BR (occurrence: BR)
  Receive Date: 20200226
  Receipt Date: 20200226
  Transmission Date: 20200409
  Serious: Yes (Other)
  Sender: FDA-Public Use
  Company Number: BR-SA-2020SA044872

PATIENT
  Age: 63 Year
  Sex: Male
  Weight: 83 kg

DRUGS (3)
  1. PANTOPRAZOLE [Concomitant]
     Active Substance: PANTOPRAZOLE
     Indication: REFLUX GASTRITIS
     Dosage: 1 DF, BID
     Route: 048
  2. LOSARTAN. [Concomitant]
     Active Substance: LOSARTAN
     Indication: HYPERTENSION
     Dosage: 1 DF, QD (IN THE MORNING)
     Route: 048
  3. ALLEGRA-D [Suspect]
     Active Substance: FEXOFENADINE\PSEUDOEPHEDRINE
     Indication: RHINITIS ALLERGIC
     Dosage: 1 DF, BID
     Route: 048

REACTIONS (3)
  - Dysentery [Not Recovered/Not Resolved]
  - Drug ineffective [Unknown]
  - Product residue present [Unknown]

NARRATIVE: CASE EVENT DATE: 20200217
